FAERS Safety Report 21588202 (Version 2)
Quarter: 2022Q4

REPORT INFORMATION
  Report Type: Spontaneous
  Country: US (occurrence: US)
  Receive Date: 20221114
  Receipt Date: 20221123
  Transmission Date: 20230113
  Serious: Yes (Hospitalization)
  Sender: FDA-Public Use
  Company Number: US-002147023-NVSC2022US254104

PATIENT
  Age: 22 Year
  Sex: Male
  Weight: 73.6 kg

DRUGS (2)
  1. MEKINIST [Suspect]
     Active Substance: TRAMETINIB DIMETHYL SULFOXIDE
     Indication: Brain neoplasm malignant
     Dosage: UNK (4 DAYS A WEEK)
     Route: 048
     Dates: start: 201603
  2. MEKINIST [Suspect]
     Active Substance: TRAMETINIB DIMETHYL SULFOXIDE
     Indication: Erdheim-Chester disease
     Dosage: 2 MG (FREQUENCY: 4 DAYS A WEEK)
     Route: 048
     Dates: start: 20201109

REACTIONS (2)
  - Hyponatraemia [Recovered/Resolved]
  - Inappropriate schedule of product administration [Unknown]

NARRATIVE: CASE EVENT DATE: 20220922
